FAERS Safety Report 14633047 (Version 1)
Quarter: 2018Q1

REPORT INFORMATION
  Report Type: Spontaneous
  Country: AU (occurrence: AU)
  Receive Date: 20180313
  Receipt Date: 20180313
  Transmission Date: 20180509
  Serious: Yes (Other)
  Sender: FDA-Public Use
  Company Number: AU-MYLANLABS-2018M1013754

PATIENT
  Sex: Female

DRUGS (4)
  1. LOXALATE [Suspect]
     Active Substance: ESCITALOPRAM OXALATE
     Indication: ANXIETY
     Dosage: UNK UNK, QD
     Dates: start: 201801, end: 201802
  2. LOXALATE [Suspect]
     Active Substance: ESCITALOPRAM OXALATE
     Indication: PANIC ATTACK
  3. IMREST [Suspect]
     Active Substance: ZOPICLONE
     Indication: PRODUCT USED FOR UNKNOWN INDICATION
     Dosage: UNK
  4. KALMA 1 [Suspect]
     Active Substance: ALPRAZOLAM
     Indication: PRODUCT USED FOR UNKNOWN INDICATION

REACTIONS (9)
  - Wrong technique in product usage process [Recovered/Resolved]
  - Drug ineffective [Recovered/Resolved]
  - Stress [Recovered/Resolved]
  - Hangover [Recovered/Resolved]
  - Inappropriate schedule of drug administration [Recovered/Resolved]
  - Depressed mood [Recovered/Resolved]
  - Urinary retention [Recovered/Resolved]
  - Prescription drug used without a prescription [Recovered/Resolved]
  - Dry mouth [Recovered/Resolved]
